FAERS Safety Report 15603336 (Version 1)
Quarter: 2018Q4

REPORT INFORMATION
  Report Type: Spontaneous
  Country: TR (occurrence: TR)
  Receive Date: 20181109
  Receipt Date: 20181109
  Transmission Date: 20190205
  Serious: Yes (Hospitalization)
  Sender: FDA-Public Use
  Company Number: TR-MYLANLABS-2018M1083483

PATIENT
  Age: 3 Month
  Sex: Female

DRUGS (4)
  1. SODIUM CHLORIDE. [Suspect]
     Active Substance: SODIUM CHLORIDE
     Indication: HYPERNATRAEMIA
     Route: 065
  2. DESMOPRESSIN [Suspect]
     Active Substance: DESMOPRESSIN
     Dosage: 40 ?G, QD/OVERDOSE
     Route: 045
  3. DEXTROSE. [Suspect]
     Active Substance: DEXTROSE
     Indication: HYPERNATRAEMIA
     Route: 065
  4. DESMOPRESSIN [Suspect]
     Active Substance: DESMOPRESSIN
     Indication: HYPERNATRAEMIA
     Dosage: 20 ?G, QD
     Route: 045

REACTIONS (4)
  - Generalised oedema [Recovered/Resolved]
  - Drug ineffective [Unknown]
  - Prescribed overdose [Recovered/Resolved]
  - Anuria [Recovered/Resolved]
